FAERS Safety Report 9400687 (Version 1)
Quarter: 2013Q3

REPORT INFORMATION
  Report Type: Report from Study
  Country: US (occurrence: US)
  Receive Date: 20130715
  Receipt Date: 20130715
  Transmission Date: 20140515
  Serious: Yes (Other)
  Sender: FDA-Public Use
  Company Number: US-BRISTOL-MYERS SQUIBB COMPANY-19079516

PATIENT
  Sex: 0

DRUGS (2)
  1. ATAZANAVIR [Suspect]
  2. RITONAVIR [Interacting]

REACTIONS (2)
  - Alanine aminotransferase increased [Unknown]
  - Drug interaction [Unknown]
